FAERS Safety Report 12468162 (Version 1)
Quarter: 2016Q2

REPORT INFORMATION
  Report Type: Spontaneous
  Country: GB (occurrence: GB)
  Receive Date: 20160615
  Receipt Date: 20160615
  Transmission Date: 20160815
  Serious: Yes (Hospitalization)
  Sender: FDA-Public Use
  Company Number: GB-ROCHE-1774992

PATIENT
  Age: 37 Year
  Sex: Female

DRUGS (6)
  1. LOPERAMIDE [Concomitant]
     Active Substance: LOPERAMIDE
  2. CORSODYL [Concomitant]
     Active Substance: CHLORHEXIDINE GLUCONATE
  3. PERJETA [Suspect]
     Active Substance: PERTUZUMAB
     Indication: PRODUCT USED FOR UNKNOWN INDICATION
     Route: 065
  4. HERCEPTIN [Suspect]
     Active Substance: TRASTUZUMAB
     Indication: PRODUCT USED FOR UNKNOWN INDICATION
     Route: 065
  5. DOCETAXEL. [Concomitant]
     Active Substance: DOCETAXEL
     Route: 065
  6. ZOLEDRONIC ACID [Concomitant]
     Active Substance: ZOLEDRONIC ACID

REACTIONS (4)
  - Neutropenic sepsis [Unknown]
  - Fatigue [Unknown]
  - Diarrhoea [Unknown]
  - Mucosal inflammation [Unknown]
